FAERS Safety Report 10879805 (Version 7)
Quarter: 2017Q1

REPORT INFORMATION
  Report Type: Spontaneous
  Country: US (occurrence: US)
  Receive Date: 20150302
  Receipt Date: 20170313
  Transmission Date: 20170428
  Serious: Yes (Other)
  Sender: FDA-Public Use
  Company Number: US-PFIZER INC-2015068212

PATIENT
  Age: 51 Year
  Sex: Female

DRUGS (1)
  1. LYRICA [Suspect]
     Active Substance: PREGABALIN
     Dosage: UNK

REACTIONS (14)
  - Self-injurious ideation [Unknown]
  - Gait disturbance [Unknown]
  - Musculoskeletal pain [Unknown]
  - Withdrawal syndrome [Unknown]
  - Epicondylitis [Unknown]
  - Stress [Unknown]
  - Diabetes mellitus [Unknown]
  - Violence-related symptom [Unknown]
  - Hypertension [Unknown]
  - Depressed mood [Unknown]
  - Fibromyalgia [Unknown]
  - Pain [Unknown]
  - Panic attack [Unknown]
  - Syncope [Unknown]
